FAERS Safety Report 4638954-0 (Version None)
Quarter: 2005Q2

REPORT INFORMATION
  Report Type: 
  Country: None (occurrence: None)
  Receive Date: 20050419
  Receipt Date: 20050407
  Transmission Date: 20051028
  Serious: Yes (Hospitalization)
  Sender: FDA-Public Use
  Company Number: FR-GLAXOSMITHKLINE-B0377772A

PATIENT
  Age: 39 Year
  Sex: Male
  Weight: 60 kg

DRUGS (9)
  1. ZIAGEN [Suspect]
     Indication: HIV INFECTION
     Dosage: 300MG TWICE PER DAY
     Route: 048
     Dates: start: 20000801, end: 20041221
  2. VIRAMUNE [Suspect]
     Indication: HIV INFECTION
     Dosage: 200MG TWICE PER DAY
     Route: 048
     Dates: start: 20000801, end: 20041221
  3. VIDEX [Suspect]
     Indication: HIV INFECTION
     Dosage: 400MG PER DAY
     Route: 048
     Dates: start: 20040609, end: 20041221
  4. REVIA [Suspect]
     Indication: ALCOHOLIC PSYCHOSIS
     Dosage: 1TAB PER DAY
     Route: 048
     Dates: start: 20041220, end: 20050114
  5. QUESTRAN [Suspect]
     Indication: GALLBLADDER DISORDER
     Dosage: 1SAC THREE TIMES PER DAY
     Route: 048
     Dates: start: 20041220, end: 20050114
  6. DITROPAN [Suspect]
     Indication: URINARY INCONTINENCE
     Route: 048
  7. SMECTA [Suspect]
     Indication: DIARRHOEA
     Route: 048
  8. ATARAX [Suspect]
     Route: 048
  9. TRANXENE [Suspect]
     Route: 048

REACTIONS (16)
  - ALLODYNIA [None]
  - ASCITES [None]
  - ASTHENIA [None]
  - CHOLESTASIS [None]
  - DEHYDRATION [None]
  - DIALYSIS [None]
  - DIARRHOEA [None]
  - GENERAL PHYSICAL HEALTH DETERIORATION [None]
  - HEPATIC ENCEPHALOPATHY [None]
  - HEPATITIS CHOLESTATIC [None]
  - HEPATOSPLENOMEGALY [None]
  - HYPERBILIRUBINAEMIA [None]
  - JAUNDICE [None]
  - PRURITUS [None]
  - RENAL DISORDER [None]
  - RENAL FAILURE ACUTE [None]
